FAERS Safety Report 8484263-1 (Version None)
Quarter: 2012Q2

REPORT INFORMATION
  Report Type: 
  Country: None (occurrence: None)
  Receive Date: 20120625
  Receipt Date: 20120620
  Transmission Date: 20120825
  Serious: Yes (Hospitalization)
  Sender: FDA-Public Use
  Company Number: US-008731

PATIENT
  Sex: Female
  Weight: 63.5036 kg

DRUGS (1)
  1. TRANEXAMIC ACID [Suspect]
     Indication: MENORRHAGIA
     Dosage: ()
     Dates: start: 20120101, end: 20120101

REACTIONS (1)
  - PULMONARY EMBOLISM [None]
